FAERS Safety Report 14751284 (Version 1)
Quarter: 2018Q2

REPORT INFORMATION
  Report Type: Spontaneous
  Country: GB (occurrence: GB)
  Receive Date: 20180412
  Receipt Date: 20180412
  Transmission Date: 20180711
  Serious: Yes (Death, Life-Threatening, Hospitalization, Other)
  Sender: FDA-Public Use
  Company Number: GB-MYLANLABS-2018M1022172

PATIENT
  Age: 85 Year
  Sex: Female

DRUGS (1)
  1. PREDNISOLONE. [Suspect]
     Active Substance: PREDNISOLONE
     Indication: TEMPORAL ARTERITIS
     Dosage: 15 MG, QD
     Route: 065

REACTIONS (12)
  - Necrosis [Fatal]
  - Pseudomonas infection [Fatal]
  - Psoas abscess [Fatal]
  - Oedema [Fatal]
  - Dermatitis bullous [Fatal]
  - Ecthyma [Fatal]
  - Blister [Fatal]
  - Pyrexia [Fatal]
  - Sepsis [Fatal]
  - Erythema [Fatal]
  - Skin erosion [Fatal]
  - Blood alkaline phosphatase increased [Fatal]
